FAERS Safety Report 18683332 (Version 2)
Quarter: 2021Q2

REPORT INFORMATION
  Report Type: Other
  Country: CA (occurrence: CA)
  Receive Date: 20201230
  Receipt Date: 20210616
  Transmission Date: 20210717
  Serious: No
  Sender: FDA-Public Use
  Company Number: CA-TOLMAR, INC.-20CA024651

PATIENT
  Age: 69 Year
  Sex: Male

DRUGS (4)
  1. ELIGARD [Suspect]
     Active Substance: LEUPROLIDE ACETATE
     Dosage: 22.5 MG, Q 3 MONTH
     Route: 058
     Dates: start: 20210308
  2. ELIGARD [Suspect]
     Active Substance: LEUPROLIDE ACETATE
     Indication: PROSTATE CANCER
     Dosage: 22.5 MG, Q 3 MONTH
     Route: 058
     Dates: start: 20201213
  3. RADIOTHERAPY [Concomitant]
     Active Substance: RADIATION THERAPY
     Indication: PRODUCT USED FOR UNKNOWN INDICATION
     Dosage: UNK
  4. ELIGARD [Suspect]
     Active Substance: LEUPROLIDE ACETATE
     Dosage: 22.5 MG, Q 3 MONTH
     Route: 058
     Dates: start: 20210531

REACTIONS (8)
  - Injection site bruising [Recovering/Resolving]
  - Frequent bowel movements [Unknown]
  - Injection site urticaria [Unknown]
  - Arthralgia [Unknown]
  - Pain [Unknown]
  - Constipation [Unknown]
  - Hypotension [Unknown]
  - Dizziness [Unknown]

NARRATIVE: CASE EVENT DATE: 202012
